FAERS Safety Report 9189370 (Version 2)
Quarter: 2013Q2

REPORT INFORMATION
  Report Type: Spontaneous
  Country: US (occurrence: None)
  Receive Date: 20130322
  Receipt Date: 20130516
  Transmission Date: 20140414
  Serious: Yes (Hospitalization)
  Sender: FDA-Public Use
  Company Number: 13AE005

PATIENT
  Age: 2 Year
  Sex: Female
  Weight: 13.6 kg

DRUGS (1)
  1. ACETAMINOPHEN [Suspect]
     Route: 048
     Dates: start: 20130307

REACTIONS (1)
  - Accidental exposure to product by child [None]
